FAERS Safety Report 16188077 (Version 3)
Quarter: 2019Q2

REPORT INFORMATION
  Report Type: Report from Study
  Country: PL (occurrence: PL)
  Receive Date: 20190412
  Receipt Date: 20190626
  Transmission Date: 20190711
  Serious: Yes (Death, Hospitalization)
  Sender: FDA-Public Use
  Company Number: PL-REGENERON PHARMACEUTICALS, INC.-2019-26679

PATIENT

DRUGS (1)
  1. EYLEA [Suspect]
     Active Substance: AFLIBERCEPT
     Indication: NEOVASCULAR AGE-RELATED MACULAR DEGENERATION
     Dosage: LAST INJECTION TO RIGHT EYE WAS RECEIVED ON 14-FEB-2019, LEFT EYE WAS 27-DEC-2018
     Route: 031
     Dates: start: 20170928

REACTIONS (2)
  - Lower limb fracture [Unknown]
  - Death [Fatal]

NARRATIVE: CASE EVENT DATE: 20190326
